FAERS Safety Report 9192784 (Version 1)
Quarter: 2013Q1

REPORT INFORMATION
  Report Type: Spontaneous
  Country: US (occurrence: US)
  Receive Date: 20130327
  Receipt Date: 20130327
  Transmission Date: 20140127
  Serious: Yes (Other)
  Sender: FDA-Public Use
  Company Number: US-PFIZER INC-2013092650

PATIENT
  Sex: Female

DRUGS (1)
  1. ADVIL [Suspect]
     Dosage: UNK

REACTIONS (4)
  - Coeliac disease [Unknown]
  - Abdominal discomfort [Unknown]
  - Malaise [Unknown]
  - Swelling [Unknown]
